FAERS Safety Report 13558785 (Version 1)
Quarter: 2017Q2

REPORT INFORMATION
  Report Type: Spontaneous
  Country: US (occurrence: US)
  Receive Date: 20170518
  Receipt Date: 20170518
  Transmission Date: 20170830
  Serious: Yes (Hospitalization, Other)
  Sender: FDA-Public Use
  Company Number: US-MYLANLABS-2017M1028987

PATIENT

DRUGS (11)
  1. DIAZEPAM. [Suspect]
     Active Substance: DIAZEPAM
     Indication: AGITATION
     Dosage: 0.1MG/KG; SCHEDULED AT EIGHT DAYS INTO PATIENT^S MECHANICAL VENTILATION COURSE
     Route: 065
  2. MIDAZOLAM [Suspect]
     Active Substance: MIDAZOLAM HYDROCHLORIDE
     Dosage: CONTINUOUS INFUSION
     Route: 050
  3. LORAZEPAM. [Suspect]
     Active Substance: LORAZEPAM
     Indication: AGITATION
     Dosage: AS NEEDED DOSE OF LORAZEPAM 0.1MG/KG
     Route: 065
  4. PHENOBARBITAL. [Suspect]
     Active Substance: PHENOBARBITAL
     Indication: AGITATION
     Route: 065
  5. MIDAZOLAM [Suspect]
     Active Substance: MIDAZOLAM HYDROCHLORIDE
     Indication: AGITATION
     Dosage: 1MCG/KG/MIN; STARTED ON DAY 9 OF VENTILATION
     Route: 041
  6. FENTANYL. [Suspect]
     Active Substance: FENTANYL
     Indication: AGITATION
     Dosage: CONTINUOUS INFUSION
     Route: 050
  7. GABAPENTIN. [Suspect]
     Active Substance: GABAPENTIN
     Indication: AGITATION
     Route: 065
  8. METHADONE [Suspect]
     Active Substance: METHADONE HYDROCHLORIDE
     Indication: AGITATION
     Route: 065
  9. DIAZEPAM. [Suspect]
     Active Substance: DIAZEPAM
     Route: 065
  10. MORPHINE [Suspect]
     Active Substance: MORPHINE
     Indication: AGITATION
     Dosage: AS NEEDED DOSES OF 50 MICROGM/KG
     Route: 040
  11. DEXMEDETOMIDINE. [Suspect]
     Active Substance: DEXMEDETOMIDINE
     Indication: AGITATION
     Dosage: CONITNUOUS INFUSION
     Route: 050

REACTIONS (1)
  - Delirium [Recovering/Resolving]
